FAERS Safety Report 7381305-1 (Version None)
Quarter: 2011Q1

REPORT INFORMATION
  Report Type: 
  Country: None (occurrence: None)
  Receive Date: 20110329
  Receipt Date: 20110317
  Transmission Date: 20110831
  Serious: Yes (Hospitalization, Other)
  Sender: FDA-Public Use
  Company Number: JP-PFIZER INC-2011067289

PATIENT
  Age: 85 Year
  Sex: Female
  Weight: 55 kg

DRUGS (9)
  1. LIPITOR [Suspect]
     Indication: DYSLIPIDAEMIA
     Dosage: 5 MG, UNKNOWN/D
     Route: 048
     Dates: start: 20100101, end: 20100201
  2. LIPITOR [Suspect]
     Dosage: 10 MG, UNKNOWN/D
     Route: 048
     Dates: start: 20100201, end: 20100401
  3. LIPITOR [Suspect]
     Dosage: 20 MG, UID/QD
     Route: 048
     Dates: start: 20100401, end: 20110101
  4. VALSARTAN [Concomitant]
  5. PROPIVERINE HYDROCHLORIDE [Concomitant]
  6. CALONAL [Concomitant]
  7. MYSLEE [Concomitant]
  8. MUCOTRON [Concomitant]
  9. ASVERIN [Concomitant]

REACTIONS (4)
  - RHABDOMYOLYSIS [None]
  - ANURIA [None]
  - ASPARTATE AMINOTRANSFERASE INCREASED [None]
  - ALANINE AMINOTRANSFERASE INCREASED [None]
